FAERS Safety Report 11851346 (Version 1)
Quarter: 2015Q4

REPORT INFORMATION
  Report Type: Spontaneous
  Country: US (occurrence: US)
  Receive Date: 20151218
  Receipt Date: 20151218
  Transmission Date: 20160305
  Serious: No
  Sender: FDA-Public Use
  Company Number: US-JNJFOC-20150902403

PATIENT
  Age: 66 Year
  Sex: Female
  Weight: 55.34 kg

DRUGS (4)
  1. WOMENS ROGAINE UNSCENTED [Suspect]
     Active Substance: MINOXIDIL
     Indication: ALOPECIA
     Dosage: A LITTLE MORE THAN 1/2 CAPFUL
     Route: 061
  2. NATURE-THROID [Concomitant]
     Active Substance: THYROID, PORCINE
     Indication: HYPOTHYROIDISM
     Dosage: SEVERAL YEAR
     Route: 065
  3. WOMENS ROGAINE UNSCENTED [Suspect]
     Active Substance: MINOXIDIL
     Route: 061
  4. PROGESTOGEN [Concomitant]
     Indication: HORMONE LEVEL ABNORMAL
     Dosage: SEVERAL YEAR
     Route: 065

REACTIONS (1)
  - Alopecia [Not Recovered/Not Resolved]
